FAERS Safety Report 13387760 (Version 8)
Quarter: 2018Q2

REPORT INFORMATION
  Report Type: Spontaneous
  Country: US (occurrence: US)
  Receive Date: 20170330
  Receipt Date: 20180625
  Transmission Date: 20180711
  Serious: Yes (Hospitalization)
  Sender: FDA-Public Use
  Company Number: US-ACTELION-A-US2017-151856

PATIENT
  Age: 58 Year
  Sex: Female
  Weight: 58.96 kg

DRUGS (4)
  1. ADEMPAS [Suspect]
     Active Substance: RIOCIGUAT
     Indication: PRODUCT USED FOR UNKNOWN INDICATION
     Dosage: 1 MG, UNK
     Route: 048
  2. WARFARIN [Concomitant]
     Active Substance: WARFARIN
  3. OPSUMIT [Suspect]
     Active Substance: MACITENTAN
     Indication: PULMONARY ARTERIAL HYPERTENSION
     Dosage: 10 MG, QD
     Route: 048
     Dates: start: 20160113
  4. VELETRI [Suspect]
     Active Substance: EPOPROSTENOL
     Indication: PULMONARY ARTERIAL HYPERTENSION
     Dosage: 52 NG/KG, PER MIN
     Route: 042
     Dates: start: 20170502

REACTIONS (14)
  - Hypotension [Unknown]
  - Cough [Recovered/Resolved]
  - Dyspnoea [Unknown]
  - Insomnia [Unknown]
  - Pneumonia [Recovered/Resolved]
  - Influenza [Unknown]
  - Blood pressure systolic decreased [Unknown]
  - Palpitations [Unknown]
  - Gastrooesophageal reflux disease [Unknown]
  - Right ventricular dilatation [Unknown]
  - Pulmonary congestion [Recovered/Resolved]
  - Headache [Unknown]
  - Diarrhoea [Unknown]
  - Bacterial infection [Unknown]

NARRATIVE: CASE EVENT DATE: 20170326
